FAERS Safety Report 15226548 (Version 1)
Quarter: 2018Q3

REPORT INFORMATION
  Report Type: Report from Study
  Country: US (occurrence: US)
  Receive Date: 20180801
  Receipt Date: 20180801
  Transmission Date: 20181010
  Serious: Yes (Other)
  Sender: FDA-Public Use
  Company Number: US-ROCHE-2161750

PATIENT
  Sex: Female

DRUGS (1)
  1. OCREVUS [Suspect]
     Active Substance: OCRELIZUMAB
     Indication: RELAPSING MULTIPLE SCLEROSIS
     Dosage: SUBSEQUENT DOSE ON  23/AUG/2017 AND 19/FEB/2018
     Route: 065
     Dates: start: 20170809

REACTIONS (1)
  - Urinary tract infection [Unknown]
